FAERS Safety Report 23221712 (Version 1)
Quarter: 2023Q4

REPORT INFORMATION
  Report Type: Spontaneous
  Country: CN (occurrence: None)
  Receive Date: 20231123
  Receipt Date: 20231123
  Transmission Date: 20240109
  Serious: Yes (Death, Other)
  Sender: FDA-Public Use
  Company Number: CN-ROCHE-3457486

PATIENT

DRUGS (2)
  1. PERJETA [Suspect]
     Active Substance: PERTUZUMAB
     Indication: Breast cancer metastatic
     Route: 065
  2. HERCEPTIN [Suspect]
     Active Substance: TRASTUZUMAB
     Indication: Breast cancer metastatic
     Route: 065

REACTIONS (26)
  - Death [Fatal]
  - Diarrhoea [Unknown]
  - Fatigue [Unknown]
  - Peripheral sensory neuropathy [Unknown]
  - Alopecia [Unknown]
  - Nausea [Unknown]
  - Paraesthesia [Unknown]
  - Stomatitis [Unknown]
  - Neutrophil count decreased [Unknown]
  - Anaemia [Unknown]
  - Abdominal pain [Unknown]
  - Muscle spasms [Unknown]
  - Decreased appetite [Unknown]
  - Epistaxis [Unknown]
  - Constipation [Unknown]
  - Dry skin [Unknown]
  - Myalgia [Unknown]
  - Pruritus [Unknown]
  - Dermatitis acneiform [Unknown]
  - Dysgeusia [Unknown]
  - Headache [Unknown]
  - Rhinitis allergic [Unknown]
  - Arthralgia [Unknown]
  - Pyrexia [Unknown]
  - Weight decreased [Unknown]
  - Hypersensitivity [Unknown]
